FAERS Safety Report 8909944 (Version 2)
Quarter: 2012Q4

REPORT INFORMATION
  Report Type: 
  Country: US (occurrence: US)
  Receive Date: 20121115
  Receipt Date: 20121227
  Transmission Date: 20130627
  Serious: Yes (Death, Hospitalization, Other)
  Sender: FDA-Public Use
  Company Number: US-PFIZER INC-2012281561

PATIENT
  Age: 57 Year
  Sex: Female
  Weight: 54.88 kg

DRUGS (20)
  1. REVATIO [Suspect]
     Indication: PULMONARY HYPERTENSION
     Dosage: 20 mg, 3x/day
     Route: 048
     Dates: end: 20121030
  2. REVATIO [Suspect]
     Indication: PULMONARY ARTERIAL HYPERTENSION
     Dosage: 20 mg, 3x/day
     Route: 048
     Dates: start: 20100708, end: 20121029
  3. TRACLEER [Concomitant]
     Indication: PULMONARY HYPERTENSION
     Dosage: 125 mg, 2x/day
  4. DILTIAZEM [Concomitant]
     Indication: CORONARY ARTERY DISEASE
     Dosage: 30 mg, 3x/day
  5. METFORMIN [Concomitant]
     Indication: DIABETES
     Dosage: 1000 mg, 2x/day
  6. PRAVASTATIN [Concomitant]
     Indication: HYPERLIPIDEMIA
     Dosage: 40 mg, daily
  7. PREDNISONE [Concomitant]
     Indication: CHRONIC OBSTRUCTIVE PULMONARY DISEASE
     Dosage: 10 mg, daily
  8. PREDNISONE [Concomitant]
     Dosage: 5 mg, 1x/day
  9. WARFARIN [Concomitant]
     Indication: PULMONARY EMBOLISM
     Dosage: 6 mg, daily
  10. RANITIDINE [Concomitant]
     Indication: GASTROESOPHAGEAL REFLUX DISEASE
     Dosage: 150 mg, 2x/day
  11. RANITIDINE [Concomitant]
     Dosage: 150 mg, 1x/day
     Route: 048
  12. OXYCODONE [Concomitant]
     Indication: PAIN
     Dosage: 5 mg, every 8 hours
  13. OXYCODONE [Concomitant]
     Dosage: 15 mg, four times daily as needed
  14. CALCIUM [Concomitant]
     Dosage: 600 mg, 2x/day
     Route: 048
  15. CYCLOBENZAPRINE HYDROCHLORIDE [Concomitant]
     Dosage: 10 mg, qhs
     Route: 048
  16. EVISTA [Concomitant]
     Dosage: 60 mg, UNK
     Route: 048
  17. COUMADINE [Concomitant]
     Dosage: 5 mg, UNK
  18. LISINOPRIL [Concomitant]
     Dosage: 10 mg, every day
     Route: 048
  19. LASIX [Concomitant]
     Dosage: 20 mg, every AM
  20. SIMVASTATIN [Concomitant]
     Dosage: 40 mg, at bedtime
     Route: 048

REACTIONS (3)
  - Death [Fatal]
  - Visual acuity reduced [Not Recovered/Not Resolved]
  - Vision blurred [Unknown]
